FAERS Safety Report 18493368 (Version 5)
Quarter: 2025Q4

REPORT INFORMATION
  Report Type: Report from Study
  Country: US (occurrence: US)
  Receive Date: 20201111
  Receipt Date: 20251209
  Transmission Date: 20260117
  Serious: Yes (Other)
  Sender: TAKEDA
  Company Number: US-TAKEDA-2020TUS046687

PATIENT
  Age: 73 Year
  Sex: Female

DRUGS (1)
  1. VEDOLIZUMAB [Suspect]
     Active Substance: VEDOLIZUMAB
     Indication: Colitis ulcerative
     Dosage: 300 MILLIGRAM, Q6WEEKS

REACTIONS (6)
  - Blindness [Unknown]
  - Mental impairment [Unknown]
  - Visual impairment [Unknown]
  - Gastrointestinal disorder [Unknown]
  - Off label use [Unknown]
  - Vomiting [Unknown]
